FAERS Safety Report 9919859 (Version 2)
Quarter: 2014Q3

REPORT INFORMATION
  Report Type: Spontaneous
  Country: BE (occurrence: BE)
  Receive Date: 20140224
  Receipt Date: 20140707
  Transmission Date: 20150326
  Serious: Yes (Death, Hospitalization)
  Sender: FDA-Public Use
  Company Number: BE-B.I. PHARMACEUTICALS,INC./RIDGEFIELD-2014-BI-07742BL

PATIENT
  Age: 71 Year
  Sex: Male
  Weight: 117 kg

DRUGS (23)
  1. PRADAXA [Suspect]
     Active Substance: DABIGATRAN ETEXILATE MESYLATE
     Indication: ATRIAL FIBRILLATION
     Dosage: 300 MG
     Route: 065
     Dates: start: 20130403
  2. BURINEX [Concomitant]
     Active Substance: BUMETANIDE
     Dosage: DOSE PER APPLICATION : 5
     Route: 065
  3. LYSOMUCIL [Concomitant]
     Active Substance: ACETYLCYSTEINE
     Route: 065
  4. OMINOBIONTA [Concomitant]
     Route: 065
  5. ZINCOTAB [Concomitant]
     Route: 065
  6. ALPRAZOLAM. [Concomitant]
     Active Substance: ALPRAZOLAM
     Dosage: DOSE PER APPLICATION : 0.5
     Route: 065
  7. FEROGRAD [Concomitant]
     Route: 065
  8. NEBUTROP [Concomitant]
     Route: 065
  9. SPIRIVA [Concomitant]
     Active Substance: TIOTROPIUM BROMIDE MONOHYDRATE
     Route: 065
  10. THEOLAIR [Concomitant]
     Active Substance: THEOPHYLLINE
     Route: 065
  11. LANOXIN [Concomitant]
     Active Substance: DIGOXIN
     Route: 065
  12. LYRICA [Concomitant]
     Active Substance: PREGABALIN
     Route: 065
  13. MEDROL [Concomitant]
     Active Substance: METHYLPREDNISOLONE
     Route: 065
  14. STEOVIT D3 [Concomitant]
     Route: 065
  15. NOVONORM [Concomitant]
     Active Substance: REPAGLINIDE
     Route: 065
  16. CORUNO [Concomitant]
     Active Substance: MOLSIDOMINE
     Route: 065
  17. PANTOMED [Concomitant]
     Active Substance: DEXPANTHENOL
     Route: 065
  18. PARACETAMOL [Concomitant]
     Active Substance: ACETAMINOPHEN
     Route: 065
  19. RAMIPRIL. [Concomitant]
     Active Substance: RAMIPRIL
     Route: 065
  20. ZOLPIDEM [Concomitant]
     Active Substance: ZOLPIDEM\ZOLPIDEM TARTRATE
     Route: 065
  21. RAMIPRIL. [Concomitant]
     Active Substance: RAMIPRIL
     Route: 065
  22. CRESTOR [Concomitant]
     Active Substance: ROSUVASTATIN CALCIUM
     Dosage: DOSE PER APPLICATION: 10
     Route: 065
  23. ALDACTONE [Concomitant]
     Active Substance: SPIRONOLACTONE
     Dosage: DOSE PER APPLICATION : 50
     Route: 065

REACTIONS (3)
  - Femur fracture [Unknown]
  - Haemorrhage intracranial [Fatal]
  - Fall [Fatal]

NARRATIVE: CASE EVENT DATE: 201402
